FAERS Safety Report 5947337-2 (Version None)
Quarter: 2008Q4

REPORT INFORMATION
  Report Type: 
  Country: None (occurrence: None)
  Receive Date: 20081110
  Receipt Date: 20081031
  Transmission Date: 20090506
  Serious: Yes (Other)
  Sender: FDA-Public Use
  Company Number: US-PFIZER INC-2008041442

PATIENT
  Age: 62 Year
  Sex: Male

DRUGS (2)
  1. LIPITOR [Suspect]
     Indication: DIABETES MELLITUS
     Dosage: DAILY DOSE:10MG-FREQ:DAILY
     Dates: start: 20011029, end: 20080101
  2. LIPITOR [Suspect]
     Indication: HYPERCHOLESTEROLAEMIA

REACTIONS (2)
  - ANTIBODY TEST ABNORMAL [None]
  - STIFF-MAN SYNDROME [None]
